FAERS Safety Report 9334159 (Version 1)
Quarter: 2013Q2

REPORT INFORMATION
  Report Type: Spontaneous
  Country: US (occurrence: US)
  Receive Date: 20130606
  Receipt Date: 20130606
  Transmission Date: 20140414
  Serious: No
  Sender: FDA-Public Use
  Company Number: US-AMGEN-USASP2013018398

PATIENT
  Age: 56 Year
  Sex: Female

DRUGS (7)
  1. PROLIA [Suspect]
     Indication: OSTEOPOROSIS POSTMENOPAUSAL
     Dosage: UNK
     Dates: start: 201204
  2. LIVALO [Concomitant]
     Dosage: 4 MG, QD
  3. METOPROLOL [Concomitant]
  4. HYDROCHLOROTHIAZIDE [Concomitant]
  5. LISINOPRIL [Concomitant]
  6. B COMPLEX                          /00212701/ [Concomitant]
     Dosage: UNK UNK, QD
  7. BABY ASPIRIN [Concomitant]

REACTIONS (3)
  - Jaw disorder [Unknown]
  - Dyskinesia [Unknown]
  - Joint crepitation [Unknown]
